FAERS Safety Report 7538978-X (Version None)
Quarter: 2011Q2

REPORT INFORMATION
  Report Type: 
  Country: None (occurrence: None)
  Receive Date: 20110610
  Receipt Date: 20110526
  Transmission Date: 20111010
  Serious: Yes (Hospitalization)
  Sender: FDA-Public Use
  Company Number: US-BAYER-201016625NA

PATIENT
  Age: 18 Year
  Sex: Female
  Weight: 76.364 kg

DRUGS (3)
  1. ZOVIA 1/35E-21 [Concomitant]
     Dosage: UNK
     Dates: start: 20090801
  2. YAZ [Suspect]
     Indication: CONTRACEPTION
     Route: 048
     Dates: start: 20080701, end: 20090301
  3. YAZ [Suspect]
     Indication: MENSTRUAL CYCLE MANAGEMENT
     Dosage: UNK
     Dates: start: 20080630, end: 20090401

REACTIONS (6)
  - CHOLELITHIASIS [None]
  - ABDOMINAL PAIN [None]
  - CHOLECYSTITIS [None]
  - FATIGUE [None]
  - ABDOMINAL PAIN UPPER [None]
  - NAUSEA [None]
